FAERS Safety Report 19005808 (Version 1)
Quarter: 2021Q1

REPORT INFORMATION
  Report Type: Spontaneous
  Country: GB (occurrence: GB)
  Receive Date: 20210314
  Receipt Date: 20210314
  Transmission Date: 20210420
  Serious: Yes (Hospitalization)
  Sender: FDA-Public Use
  Company Number: GB-STRIDES ARCOLAB LIMITED-2021SP003035

PATIENT
  Sex: Female

DRUGS (11)
  1. TOBRAMYCIN. [Suspect]
     Active Substance: TOBRAMYCIN
     Indication: ANTIBIOTIC PROPHYLAXIS
     Dosage: UNK, PRE?TRANSPLANT
     Route: 042
  2. MEROPENEM. [Suspect]
     Active Substance: MEROPENEM
     Indication: ANTIBIOTIC PROPHYLAXIS
     Dosage: UNK, PRE?TRANSPLANT
     Route: 042
  3. CLARITHROMYCIN. [Suspect]
     Active Substance: CLARITHROMYCIN
     Indication: ANTIBIOTIC PROPHYLAXIS
     Dosage: UNK, PRE?TRANSPLANT
     Route: 048
  4. COTRIMOXAZOLE [Suspect]
     Active Substance: SULFAMETHOXAZOLE\TRIMETHOPRIM
     Indication: ANTIBIOTIC PROPHYLAXIS
     Dosage: UNK, POST?TRANSPLANT
     Route: 042
  5. MOXIFLOXACIN. [Suspect]
     Active Substance: MOXIFLOXACIN
     Indication: ANTIBIOTIC PROPHYLAXIS
     Dosage: UNK, PRE?TRANSPLANT
     Route: 048
  6. AMIKACIN. [Suspect]
     Active Substance: AMIKACIN
     Dosage: UNK, POST?TRANSPLANT
     Route: 042
  7. CLARITHROMYCIN. [Suspect]
     Active Substance: CLARITHROMYCIN
     Dosage: UNK, POST?TRANSPLANT
     Route: 042
  8. AMIKACIN. [Suspect]
     Active Substance: AMIKACIN
     Indication: ANTIBIOTIC PROPHYLAXIS
     Dosage: UNK, PRE?TRANSPLANT
  9. MEROPENEM. [Suspect]
     Active Substance: MEROPENEM
     Dosage: UNK, POST?TRANSPLANT
     Route: 065
  10. TIGECYCLINE. [Suspect]
     Active Substance: TIGECYCLINE
     Indication: ANTIBIOTIC PROPHYLAXIS
     Dosage: UNK, PRE?TRANSPLANT
     Route: 042
  11. TIGECYCLINE. [Suspect]
     Active Substance: TIGECYCLINE
     Dosage: UNK, POST?TRANSPLANT
     Route: 042

REACTIONS (4)
  - Hepatic function abnormal [Unknown]
  - Nausea [Unknown]
  - Renal impairment [Unknown]
  - Gastrointestinal disorder [Unknown]
